FAERS Safety Report 6202931-9 (Version None)
Quarter: 2009Q2

REPORT INFORMATION
  Report Type: 
  Country: None (occurrence: None)
  Receive Date: 20090526
  Receipt Date: 20090518
  Transmission Date: 20091009
  Serious: Yes (Life-Threatening, Hospitalization, Other)
  Sender: FDA-Public Use
  Company Number: US-CVT-090299

PATIENT

DRUGS (5)
  1. RANEXA [Suspect]
     Indication: DRUG USE FOR UNKNOWN INDICATION
     Route: 048
     Dates: end: 20090501
  2. ZITHROMAX [Suspect]
     Indication: PNEUMONIA
     Dates: start: 20090501, end: 20090501
  3. ZITHROMAX [Suspect]
     Indication: ENTEROCOCCAL SEPSIS
  4. ROCEPHIN [Concomitant]
     Indication: PNEUMONIA
  5. ROCEPHIN [Concomitant]
     Indication: ENTEROCOCCAL SEPSIS

REACTIONS (4)
  - CARDIAC ARREST [None]
  - ENTEROCOCCAL SEPSIS [None]
  - PNEUMONIA [None]
  - TORSADE DE POINTES [None]
